FAERS Safety Report 18014446 (Version 1)
Quarter: 2020Q3

REPORT INFORMATION
  Report Type: Spontaneous
  Country: US (occurrence: US)
  Receive Date: 20200713
  Receipt Date: 20200713
  Transmission Date: 20201103
  Serious: Yes (Other)
  Sender: FDA-Public Use
  Company Number: None

PATIENT
  Age: 54 Year
  Sex: Female
  Weight: 98.69 kg

DRUGS (14)
  1. CALCIUM CITRATE?VITAMIN D3 [Concomitant]
     Active Substance: CALCIUM CITRATE\CHOLECALCIFEROL
     Dates: start: 20200303
  2. GLUCOSAMINE?CHONDROITIN [Concomitant]
     Active Substance: CHONDROITIN SULFATE (BOVINE)\GLUCOSAMINE SULFATE
     Dates: start: 20200303
  3. TYLENOL [Concomitant]
     Active Substance: ACETAMINOPHEN
     Dates: start: 20200303
  4. HYDROCODONE?ACETAMINOPHEN [Concomitant]
     Active Substance: ACETAMINOPHEN\HYDROCODONE
     Dates: start: 20180924
  5. T?RELIEF CBD+13 SUBLINGUAL [Concomitant]
     Dates: start: 20200303
  6. TRAMADOL. [Concomitant]
     Active Substance: TRAMADOL
     Dates: start: 20190218
  7. DICLOFENAC SODIUM. [Concomitant]
     Active Substance: DICLOFENAC SODIUM
     Dates: start: 20191112
  8. EMGALITY [Suspect]
     Active Substance: GALCANEZUMAB-GNLM
     Indication: MIGRAINE
     Dosage: ?          OTHER FREQUENCY:ONCE A MONTH;?
     Route: 058
     Dates: start: 20200409, end: 20200528
  9. ONE?A?DAY WOMENS [Concomitant]
     Dates: start: 20200303
  10. CYCLOBENZAPRINE. [Concomitant]
     Active Substance: CYCLOBENZAPRINE
     Dates: start: 20191227
  11. DICYCLOMINE [Concomitant]
     Active Substance: DICYCLOMINE HYDROCHLORIDE
     Dates: start: 20190218
  12. DIPHENHYDRAMINE. [Concomitant]
     Active Substance: DIPHENHYDRAMINE
     Dates: start: 20191112
  13. RIZATRIPTAN. [Concomitant]
     Active Substance: RIZATRIPTAN
     Dates: start: 20191112
  14. BLACK PEPPER?TURMERIC [Concomitant]
     Dates: start: 20190218

REACTIONS (6)
  - Lethargy [None]
  - Scab [None]
  - Pruritus [None]
  - Skin ulcer [None]
  - Constipation [None]
  - Rash [None]

NARRATIVE: CASE EVENT DATE: 20200403
